FAERS Safety Report 4553967-5 (Version None)
Quarter: 2005Q1

REPORT INFORMATION
  Report Type: 
  Country: None (occurrence: None)
  Receive Date: 20050118
  Receipt Date: 20050104
  Transmission Date: 20050727
  Serious: Yes (Hospitalization)
  Sender: FDA-Public Use
  Company Number: US-JNJFOC-20041101290

PATIENT
  Sex: Female
  Weight: 63.2 kg

DRUGS (19)
  1. REMICADE [Suspect]
     Indication: EPISCLERITIS
     Route: 042
  2. REMICADE [Suspect]
     Indication: IRITIS
     Dosage: TOATL OF THREE INFUSIONS
     Route: 042
  3. DURAGESIC [Concomitant]
     Indication: PAIN
     Route: 062
  4. PREDNISONE [Concomitant]
  5. PREDNISONE [Concomitant]
     Dosage: TAPERING AFTER ONE WEEK TO 20 MG
  6. METHOTREXATE [Concomitant]
     Route: 058
  7. PRED FORTE EYE DROPS [Concomitant]
     Dosage: RIGHT EYE
  8. LOTEMAX [Concomitant]
     Dosage: LEFT EYE
  9. ALPHAGAN [Concomitant]
     Dosage: GTTS - EACH EYE
  10. PROVIGIL [Concomitant]
     Dosage: MORNING
  11. CYCLOSPORINE [Concomitant]
     Dosage: EVENING
  12. CYCLOSPORINE [Concomitant]
     Dosage: MORNING
  13. METFORMIN HCL [Concomitant]
  14. DEXEDRINE [Concomitant]
     Dosage: 1-4 TABLETS QD
  15. PERCOCET [Concomitant]
  16. PERCOCET [Concomitant]
     Dosage: 1EVERY 4 HOURS WHENEVER NECESSARY FOR PAIN
  17. METHADONE HCL [Concomitant]
     Dosage: 10 MG Q12 HOURS
  18. VERAPAMIL [Concomitant]
  19. BENADRYL [Concomitant]
     Indication: PREMEDICATION

REACTIONS (8)
  - EXCORIATION [None]
  - FALL [None]
  - OEDEMA PERIPHERAL [None]
  - PAIN [None]
  - RASH [None]
  - RASH SCALY [None]
  - RIB FRACTURE [None]
  - SKIN LESION [None]
